FAERS Safety Report 15670880 (Version 1)
Quarter: 2018Q4

REPORT INFORMATION
  Report Type: Spontaneous
  Country: JP (occurrence: JP)
  Receive Date: 20181129
  Receipt Date: 20181129
  Transmission Date: 20190205
  Serious: No
  Sender: FDA-Public Use
  Company Number: JP-NODEN DAC PHARMA-NOD-2017-000128

PATIENT

DRUGS (1)
  1. ALISKIREN [Suspect]
     Active Substance: ALISKIREN
     Indication: HYPERTENSION
     Dosage: UNK
     Route: 048

REACTIONS (3)
  - Blood aldosterone decreased [Unknown]
  - Urine albumin/creatinine ratio decreased [Unknown]
  - Blood potassium increased [Unknown]
